FAERS Safety Report 16664018 (Version 1)
Quarter: 2019Q3

REPORT INFORMATION
  Report Type: Spontaneous
  Country: UA (occurrence: UA)
  Receive Date: 20190802
  Receipt Date: 20190802
  Transmission Date: 20191004
  Serious: Yes (Hospitalization, Other)
  Sender: FDA-Public Use
  Company Number: UA-GLAXOSMITHKLINE-UA2019GSK132464

PATIENT
  Age: 34 Year
  Sex: Female
  Weight: 50 kg

DRUGS (4)
  1. RISPERIDONE. [Concomitant]
     Active Substance: RISPERIDONE
     Indication: PRODUCT USED FOR UNKNOWN INDICATION
     Dosage: UNK
     Route: 048
  2. CHLORPROTHIXENE [Concomitant]
     Active Substance: CHLORPROTHIXENE
     Indication: PRODUCT USED FOR UNKNOWN INDICATION
     Dosage: UNK
     Route: 048
  3. TRIHEXYPHENIDYL [Concomitant]
     Active Substance: TRIHEXYPHENIDYL
     Indication: PRODUCT USED FOR UNKNOWN INDICATION
     Dosage: UNK
     Route: 048
  4. LAMOTRIGINE. [Suspect]
     Active Substance: LAMOTRIGINE
     Indication: SEIZURE
     Dosage: UNK

REACTIONS (16)
  - Neuroleptic malignant syndrome [Recovered/Resolved]
  - Upper motor neurone lesion [Recovered/Resolved]
  - Urticaria [Recovered/Resolved]
  - Mouth ulceration [Recovered/Resolved]
  - Stevens-Johnson syndrome [Recovered/Resolved]
  - Transaminases increased [Recovered/Resolved]
  - Hallucination, visual [Recovered/Resolved]
  - Polyneuropathy [Recovered/Resolved]
  - Leukocytosis [Recovered/Resolved]
  - Body temperature increased [Recovered/Resolved]
  - Hyperaesthesia [Recovered/Resolved]
  - Arthralgia [Recovered/Resolved]
  - Drug hypersensitivity [Recovered/Resolved]
  - Hallucination [Recovered/Resolved]
  - Mucosal hyperaemia [Recovered/Resolved]
  - Hypoproteinaemia [Recovered/Resolved]
